FAERS Safety Report 10504862 (Version 1)
Quarter: 2014Q4

REPORT INFORMATION
  Report Type: Spontaneous
  Country: US (occurrence: US)
  Receive Date: 20141008
  Receipt Date: 20141008
  Transmission Date: 20150528
  Serious: No
  Sender: FDA-Public Use
  Company Number: US-B.I. PHARMACEUTICALS,INC./RIDGEFIELD-2014-BI-46860BP

PATIENT
  Age: 64 Year
  Sex: Male
  Weight: 49.9 kg

DRUGS (3)
  1. COMBIVENT [Suspect]
     Active Substance: ALBUTEROL SULFATE\IPRATROPIUM BROMIDE
     Indication: CHRONIC OBSTRUCTIVE PULMONARY DISEASE
     Dosage: DOSE PER APPLICATION: 20MCG / 100MCG; DAILY DOSE: 80MCG/ 400MCG
     Route: 055
     Dates: start: 2011
  2. QVAR [Concomitant]
     Active Substance: BECLOMETHASONE DIPROPIONATE
     Indication: CHRONIC OBSTRUCTIVE PULMONARY DISEASE
     Dosage: 4 PUF
     Route: 055
     Dates: start: 200806
  3. SYMBICORT [Concomitant]
     Active Substance: BUDESONIDE\FORMOTEROL FUMARATE DIHYDRATE
     Indication: CHRONIC OBSTRUCTIVE PULMONARY DISEASE
     Dosage: 2 PUF
     Route: 055
     Dates: start: 20140903, end: 20140917

REACTIONS (5)
  - Lower respiratory tract infection [Not Recovered/Not Resolved]
  - Lung disorder [Not Recovered/Not Resolved]
  - Headache [Recovered/Resolved]
  - Dyspnoea [Not Recovered/Not Resolved]
  - Abdominal pain upper [Recovered/Resolved]

NARRATIVE: CASE EVENT DATE: 20140905
